FAERS Safety Report 5404949-2 (Version None)
Quarter: 2007Q3

REPORT INFORMATION
  Report Type: 
  Country: None (occurrence: None)
  Receive Date: 20070801
  Receipt Date: 20070611
  Transmission Date: 20080115
  Serious: Yes (Hospitalization, Other)
  Sender: FDA-Public Use
  Company Number: TPA2007A01098

PATIENT
  Age: 74 Year
  Sex: Female
  Weight: 66.452 kg

DRUGS (11)
  1. PIOGLITAZONE HCL [Suspect]
     Indication: CARDIOVASCULAR EVENT PROPHYLAXIS
     Dosage: 1 IN 1 D, PER ORAL
     Route: 048
     Dates: start: 20070117, end: 20070125
  2. PIOGLITAZONE HCL [Suspect]
     Indication: CEREBROVASCULAR ACCIDENT PROPHYLAXIS
     Dosage: 1 IN 1 D, PER ORAL
     Route: 048
     Dates: start: 20070117, end: 20070125
  3. PRILOSEC [Concomitant]
  4. ASPIRIN [Concomitant]
  5. PRAVASTATIN [Concomitant]
  6. CLOPIDOGREL [Concomitant]
  7. SOTALOL HCL [Concomitant]
  8. AGGRENOX [Concomitant]
  9. NEXIUM [Concomitant]
  10. IRON         (IRON) [Concomitant]
  11. VIT C  (ASCORBIC ACID) [Concomitant]

REACTIONS (6)
  - BUNDLE BRANCH BLOCK LEFT [None]
  - CARDIAC FAILURE CONGESTIVE [None]
  - CONDITION AGGRAVATED [None]
  - ROAD TRAFFIC ACCIDENT [None]
  - SUBARACHNOID HAEMORRHAGE [None]
  - URINARY TRACT INFECTION [None]
